FAERS Safety Report 7816066-2 (Version None)
Quarter: 2011Q4

REPORT INFORMATION
  Report Type: 
  Country: None (occurrence: None)
  Receive Date: 20111015
  Receipt Date: 20111010
  Transmission Date: 20120403
  Serious: Yes (Death, Other)
  Sender: FDA-Public Use
  Company Number: SE-ASTRAZENECA-2011SE53798

PATIENT

DRUGS (1)
  1. MEROPENEM [Suspect]
     Indication: POST PROCEDURAL INFECTION
     Route: 042

REACTIONS (2)
  - DEATH [None]
  - CONVULSION [None]
